FAERS Safety Report 9303503 (Version 1)
Quarter: 2013Q2

REPORT INFORMATION
  Report Type: Spontaneous
  Country: US (occurrence: US)
  Receive Date: 20130522
  Receipt Date: 20130522
  Transmission Date: 20140414
  Serious: No
  Sender: FDA-Public Use
  Company Number: US-PFIZER INC-2013153160

PATIENT
  Age: 51 Year
  Sex: Female
  Weight: 109 kg

DRUGS (3)
  1. LEVOXYL [Suspect]
     Indication: HYPOTHYROIDISM
     Dosage: 125 UG, 1X/DAY
     Dates: end: 20130511
  2. TOPROL XL [Interacting]
     Indication: CARDIAC DISORDER
     Dosage: UNK
  3. ASPIRIN [Concomitant]
     Dosage: UNK

REACTIONS (6)
  - Drug interaction [Unknown]
  - Drug effect decreased [Unknown]
  - Fatigue [Unknown]
  - Malaise [Unknown]
  - Thyroid function test abnormal [Unknown]
  - Weight increased [Unknown]
